FAERS Safety Report 8803740 (Version 1)
Quarter: 2012Q4

REPORT INFORMATION
  Report Type: 
  Country: US (occurrence: US)
  Receive Date: 20120924
  Receipt Date: 20120924
  Transmission Date: 20130627
  Serious: No
  Sender: FDA-Public Use
  Company Number: US-009507513-1208USA011812

PATIENT
  Sex: Male

DRUGS (3)
  1. PEGINTRON [Suspect]
     Dosage: UNK
     Dates: start: 20120610
  2. REBETOL [Suspect]
     Indication: HEPATITIS C
     Dosage: UNK
     Dates: start: 20120610
  3. INCIVEK [Suspect]
     Indication: HEPATITIS C
     Dosage: UNK
     Dates: start: 20120610

REACTIONS (16)
  - White blood cell count decreased [Unknown]
  - Dehydration [Unknown]
  - Pruritus generalised [Unknown]
  - Bone pain [Unknown]
  - Pain [Unknown]
  - Pain [Unknown]
  - Polyuria [Unknown]
  - Blood pressure decreased [Unknown]
  - Insomnia [Unknown]
  - Photophobia [Unknown]
  - Photosensitivity reaction [Unknown]
  - Adverse event [Unknown]
  - Pruritus [Unknown]
  - Psoriasis [Unknown]
  - Irritability [Unknown]
  - Photosensitivity reaction [Unknown]
